FAERS Safety Report 23816824 (Version 1)
Quarter: 2024Q2

REPORT INFORMATION
  Report Type: Report from Study
  Country: ZA (occurrence: ZA)
  Receive Date: 20240504
  Receipt Date: 20240504
  Transmission Date: 20240716
  Serious: Yes (Hospitalization, Other)
  Sender: FDA-Public Use
  Company Number: ZA-002147023-NVSC2024ZA042332

PATIENT
  Age: 56 Year
  Sex: Male

DRUGS (1)
  1. SIPONIMOD [Suspect]
     Active Substance: SIPONIMOD
     Indication: Multiple sclerosis
     Dosage: 2 MG, QD
     Route: 048
     Dates: start: 20221116

REACTIONS (5)
  - Multiple sclerosis relapse [Recovering/Resolving]
  - Loss of consciousness [Unknown]
  - Head injury [Unknown]
  - Confusional state [Unknown]
  - Pain [Recovering/Resolving]
